FAERS Safety Report 4285730-7 (Version None)
Quarter: 2004Q1

REPORT INFORMATION
  Report Type: 
  Country: None (occurrence: None)
  Receive Date: 20040203
  Receipt Date: 20040203
  Transmission Date: 20041129
  Serious: Yes (Other)
  Sender: FDA-Public Use
  Company Number: None

PATIENT
  Age: 93 Year
  Sex: Female
  Weight: 46.2669 kg

DRUGS (13)
  1. METRONIDAZOLE [Suspect]
     Indication: INFECTION
     Dosage: 500 MG IV Q 8 H
     Route: 042
     Dates: start: 20040104
  2. PHENERGAN [Concomitant]
  3. DARVOCET [Concomitant]
  4. LEVAQUIN [Concomitant]
  5. DULCOLAX [Concomitant]
  6. NUBAIN [Concomitant]
  7. LASIX [Concomitant]
  8. TYLENOL (CAPLET) [Concomitant]
  9. PHENERGAN W/ CODEINE [Concomitant]
  10. ROCEPHIN [Concomitant]
  11. ALBUTEROL [Concomitant]
  12. ALDACTONE [Concomitant]
  13. NYSTATIN [Concomitant]

REACTIONS (2)
  - PRURITUS [None]
  - RASH [None]
